FAERS Safety Report 6035875-6 (Version None)
Quarter: 2009Q1

REPORT INFORMATION
  Report Type: 
  Country: None (occurrence: None)
  Receive Date: 20090113
  Receipt Date: 20090109
  Transmission Date: 20090719
  Serious: Yes (Hospitalization)
  Sender: FDA-Public Use
  Company Number: A0693028A

PATIENT
  Age: 51 Year
  Sex: Male
  Weight: 109.1 kg

DRUGS (7)
  1. AVANDIA [Suspect]
     Dosage: 4MG PER DAY
     Route: 048
     Dates: start: 20050501
  2. METFORMIN [Concomitant]
     Dates: start: 20050501
  3. ASPIRIN [Concomitant]
     Indication: PROPHYLAXIS
  4. TOPROL-XL [Concomitant]
  5. ENALAPRIL MALEATE [Concomitant]
  6. LIPITOR [Concomitant]
  7. ALBUTEROL [Concomitant]

REACTIONS (3)
  - CORONARY ARTERY DISEASE [None]
  - INJURY [None]
  - MYOCARDIAL INFARCTION [None]
